FAERS Safety Report 9871625 (Version 1)
Quarter: 2014Q1

REPORT INFORMATION
  Report Type: Spontaneous
  Country: CA (occurrence: CA)
  Receive Date: 20140205
  Receipt Date: 20140205
  Transmission Date: 20141002
  Serious: Yes (Other)
  Sender: FDA-Public Use
  Company Number: CA-GILEAD-2014-0093740

PATIENT
  Age: 47 Year
  Sex: Female

DRUGS (13)
  1. AMBRISENTAN [Suspect]
     Indication: PULMONARY ARTERIAL HYPERTENSION
     Dosage: 10MG UNKNOWN
     Route: 048
     Dates: start: 20110325
  2. CALCIUM [Concomitant]
  3. VITAMIN D NOS [Concomitant]
  4. FUROSEMIDE [Concomitant]
  5. FERROUS SULFATE [Concomitant]
  6. PLAQUENIL                          /00072603/ [Concomitant]
  7. ASAPHEN [Concomitant]
  8. PREDNISONE [Concomitant]
  9. FOSAMAX [Concomitant]
  10. COVERSYL                           /00790702/ [Concomitant]
  11. METOPROLOL                         /00376902/ [Concomitant]
  12. IBUPROFEN [Concomitant]
  13. DILAUDID [Concomitant]

REACTIONS (1)
  - Knee arthroplasty [Not Recovered/Not Resolved]
